FAERS Safety Report 5120425-9 (Version None)
Quarter: 2006Q4

REPORT INFORMATION
  Report Type: 
  Country: None (occurrence: None)
  Receive Date: 20061004
  Receipt Date: 20060928
  Transmission Date: 20070319
  Serious: Yes (Life-Threatening)
  Sender: FDA-Public Use
  Company Number: GB-GLAXOSMITHKLINE-B0440639A

PATIENT
  Age: 70 Year
  Sex: Female

DRUGS (9)
  1. AMOXICILLIN [Suspect]
     Indication: ENDOSCOPY GASTROINTESTINAL
     Route: 042
     Dates: start: 20060721, end: 20060721
  2. GENTAMICIN [Suspect]
     Indication: ENDOSCOPY GASTROINTESTINAL
     Route: 042
     Dates: start: 20060721, end: 20060721
  3. BENZYLPENICILLIN [Suspect]
  4. BISOPROLOL FUMARATE [Concomitant]
     Indication: HYPERTENSION
     Dosage: 10MG PER DAY
     Route: 048
  5. CANDESARTAN [Concomitant]
     Indication: HYPERTENSION
     Dosage: 8MG PER DAY
     Route: 048
     Dates: end: 20060721
  6. ELANTAN LA [Concomitant]
     Indication: HYPERTENSION
     Route: 048
     Dates: start: 20060721
  7. FUROSEMIDE [Concomitant]
     Indication: OEDEMA
     Dosage: 80MG PER DAY
     Route: 048
  8. ACETAMINOPHEN [Concomitant]
     Indication: PAIN
     Dosage: 1G FOUR TIMES PER DAY
     Route: 048
  9. WARFARIN SODIUM [Concomitant]
     Indication: MITRAL VALVE REPLACEMENT
     Route: 048
     Dates: start: 19980101

REACTIONS (3)
  - ANAPHYLACTIC SHOCK [None]
  - HYPOTENSION [None]
  - PO2 DECREASED [None]
